FAERS Safety Report 7145660-X (Version None)
Quarter: 2010Q4

REPORT INFORMATION
  Report Type: 
  Country: None (occurrence: None)
  Receive Date: 20101208
  Receipt Date: 20101206
  Transmission Date: 20110411
  Serious: No
  Sender: FDA-Public Use
  Company Number: US-ROXANE LABORATORIES, INC.-2010-RO-01586RO

PATIENT
  Sex: Female

DRUGS (10)
  1. PREDNISONE [Suspect]
     Indication: POLYGLANDULAR DISORDER
     Dosage: 5 MG
     Route: 048
  2. ZANAFLEX [Concomitant]
  3. XANAX [Concomitant]
  4. DEXAMETHASONE [Concomitant]
  5. HUMAN GROWTH HORMONE [Concomitant]
  6. THYROID [Concomitant]
  7. RECLAST [Concomitant]
  8. MONOPRIL [Concomitant]
  9. HYDROCHLOROTHIAZIDE [Concomitant]
  10. DESMOPRESSIN [Concomitant]

REACTIONS (6)
  - ABDOMINAL DISTENSION [None]
  - BONE DISORDER [None]
  - CATARACT [None]
  - DECREASED IMMUNE RESPONSIVENESS [None]
  - LIPOHYPERTROPHY [None]
  - MEMORY IMPAIRMENT [None]
